FAERS Safety Report 6731694-3 (Version None)
Quarter: 2010Q2

REPORT INFORMATION
  Report Type: 
  Country: None (occurrence: None)
  Receive Date: 20100519
  Receipt Date: 20100513
  Transmission Date: 20101027
  Serious: Yes (Death, Hospitalization, Other)
  Sender: FDA-Public Use
  Company Number: BR-BAYER-201014586LA

PATIENT
  Age: 75 Year
  Sex: Male

DRUGS (2)
  1. NEXAVAR [Suspect]
     Indication: DRUG USE FOR UNKNOWN INDICATION
     Dosage: TOTAL DAILY DOSE: 400 MG  UNIT DOSE: 200 MG
     Route: 048
     Dates: start: 20100111, end: 20100211
  2. NEXAVAR [Suspect]
     Dosage: TOTAL DAILY DOSE: 200 MG  UNIT DOSE: 200 MG
     Route: 048
     Dates: start: 20100227, end: 20100404

REACTIONS (3)
  - DEATH [None]
  - HEPATIC CIRRHOSIS [None]
  - HOSPITALISATION [None]
